FAERS Safety Report 9972950 (Version 2)
Quarter: 2014Q2

REPORT INFORMATION
  Report Type: Spontaneous
  Country: CN (occurrence: CN)
  Receive Date: 20140306
  Receipt Date: 20140428
  Transmission Date: 20141212
  Serious: Yes (Life-Threatening)
  Sender: FDA-Public Use
  Company Number: CN-CELGENEUS-035-21660-14023356

PATIENT
  Age: 50 Year
  Sex: 0

DRUGS (1)
  1. ABRAXANE [Suspect]
     Indication: PANCREATIC CARCINOMA
     Dosage: 200 MILLIGRAM
     Route: 041
     Dates: start: 201401, end: 201401

REACTIONS (3)
  - Full blood count decreased [Recovering/Resolving]
  - Liver abscess [Recovered/Resolved]
  - Infection [Recovered/Resolved]
